FAERS Safety Report 7608353-8 (Version None)
Quarter: 2011Q3

REPORT INFORMATION
  Report Type: 
  Country: None (occurrence: None)
  Receive Date: 20110713
  Receipt Date: 20110713
  Transmission Date: 20111222
  Serious: Yes (Other)
  Sender: FDA-Public Use
  Company Number: None

PATIENT
  Sex: Male
  Weight: 45 kg

DRUGS (2)
  1. KEPPRA [Suspect]
     Indication: EPILEPSY
     Dosage: 15ML BID PO
     Route: 048
  2. KEPPRA [Suspect]
     Indication: QUADRIPARESIS
     Dosage: 15ML BID PO
     Route: 048

REACTIONS (1)
  - CONVULSION [None]
